FAERS Safety Report 18024263 (Version 1)
Quarter: 2020Q3

REPORT INFORMATION
  Report Type: Spontaneous
  Country: US (occurrence: US)
  Receive Date: 20200714
  Receipt Date: 20200714
  Transmission Date: 20201103
  Serious: Yes (Other)
  Sender: FDA-Public Use
  Company Number: None

PATIENT
  Age: 54 Year
  Sex: Male
  Weight: 104.3 kg

DRUGS (22)
  1. CEFTRIAXONE 1G IV ONCE [Concomitant]
     Dates: start: 20200623, end: 20200623
  2. DEXAMETHASONE 6MG DAILY [Concomitant]
     Dates: start: 20200624, end: 20200701
  3. EPINEPHRINE IV CONTINUOUS INFUSION [Concomitant]
     Dates: start: 20200630, end: 20200701
  4. LANTUS QHS [Concomitant]
     Dates: start: 20200624, end: 20200701
  5. INSULIN LISPRO SLIDING SCALE 4X/D [Concomitant]
     Dates: start: 20200624, end: 20200701
  6. PHENYLEPHRINE INFUSION [Concomitant]
     Dates: start: 20200630, end: 20200701
  7. ASPIRIN EC 81MG PO DAILY [Concomitant]
     Dates: start: 20200625, end: 20200701
  8. FUROSEMIDE 20MG IV DAIILY [Concomitant]
     Dates: start: 20200624, end: 20200626
  9. REMDESIVIR. [Suspect]
     Active Substance: REMDESIVIR
     Indication: COVID-19 PNEUMONIA
     Dosage: ?          OTHER FREQUENCY:200MGX1, 100MG/D 4;?
     Route: 042
     Dates: start: 20200624, end: 20200628
  10. ENOXAPARIN 30MG SUBQ Q12H [Concomitant]
     Dates: start: 20200624, end: 20200701
  11. EPOPROSTENOL CONTINUOUS NEB [Concomitant]
     Dates: start: 20200630, end: 20200701
  12. NOREPINEPHRINE INFUSION [Concomitant]
     Dates: start: 20200630, end: 20200701
  13. SODIUM BICARBONATE INFUSION [Concomitant]
     Dates: start: 20200630, end: 20200701
  14. VECURONIUM IV CONTINUOUS INFUSION [Concomitant]
     Dates: start: 20200630, end: 20200701
  15. VASOPRESSIN IV CONTINUOUS INFUSION [Concomitant]
     Dates: start: 20200630, end: 20200701
  16. AZITHROMYCIN 500MG IV Q24H [Concomitant]
     Dates: start: 20200623, end: 20200627
  17. MIDAZOLAM IV CONTINUOUS INFUSION [Concomitant]
     Dates: start: 20200630, end: 20200701
  18. ROCURONIUM IV PUSHES PRN FOR VENT DYSSYNCHRONY [Concomitant]
     Dates: start: 20200630, end: 20200701
  19. ATORVASTATIN 20MG PO QHS [Concomitant]
     Dates: start: 20200624, end: 20200701
  20. FAMOTIDINE 20MG IV Q12H AND Q24H [Concomitant]
     Dates: start: 20200624, end: 20200701
  21. FENTANYL INFUSION [Concomitant]
     Active Substance: FENTANYL
     Dates: start: 20200630, end: 20200701
  22. PROPOFOL INFUSION [Concomitant]
     Active Substance: PROPOFOL
     Dates: start: 20200630, end: 20200701

REACTIONS (6)
  - Inflammatory marker increased [None]
  - Hypotension [None]
  - Blood creatinine increased [None]
  - Oxygen saturation decreased [None]
  - Cardiac arrest [None]
  - International normalised ratio increased [None]

NARRATIVE: CASE EVENT DATE: 20200630
